FAERS Safety Report 7349783-1 (Version None)
Quarter: 2011Q1

REPORT INFORMATION
  Report Type: 
  Country: None (occurrence: None)
  Receive Date: 20110309
  Receipt Date: 20110309
  Transmission Date: 20110831
  Serious: Yes (Hospitalization)
  Sender: FDA-Public Use
  Company Number: None

PATIENT
  Sex: Male
  Weight: 59 kg

DRUGS (5)
  1. DOXORUBICIN HCL [Suspect]
     Dosage: 129 MG
  2. METHOTREXATE [Suspect]
     Dosage: 15MG
  3. PEG-L ASPARAGINASE (K-H) [Suspect]
     Dosage: 4375 IU
  4. VINCRISTINE SULFATE [Suspect]
     Dosage: 6 MG
  5. DEXAMETHASONE [Suspect]
     Dosage: 224 MG

REACTIONS (7)
  - BLOOD TRIGLYCERIDES INCREASED [None]
  - FLATULENCE [None]
  - NEUTROPHIL COUNT DECREASED [None]
  - WHITE BLOOD CELL COUNT DECREASED [None]
  - HAEMATOCRIT DECREASED [None]
  - ABDOMINAL PAIN LOWER [None]
  - HAEMOGLOBIN DECREASED [None]
